FAERS Safety Report 5958131-0 (Version None)
Quarter: 2008Q4

REPORT INFORMATION
  Report Type: 
  Country: None (occurrence: None)
  Receive Date: 20081117
  Receipt Date: 20081105
  Transmission Date: 20090506
  Serious: Yes (Other)
  Sender: FDA-Public Use
  Company Number: 2008AP002108

PATIENT
  Age: 78 Year
  Sex: Female
  Weight: 58.514 kg

DRUGS (5)
  1. MELOXICAM [Suspect]
     Indication: OSTEOARTHRITIS
     Dosage: 15 MG; QD; PO
     Route: 048
     Dates: start: 20080620, end: 20080716
  2. MELOXICAM [Suspect]
     Indication: PERIPHERAL NERVE LESION
     Dosage: 15 MG; QD; PO
     Route: 048
     Dates: start: 20080620, end: 20080716
  3. LEVOTHYROXINE SODIUM [Concomitant]
  4. METOPROLOL TARTRATE [Concomitant]
  5. WARFARIN SODIUM [Concomitant]

REACTIONS (6)
  - ATRIAL FIBRILLATION [None]
  - CARDIAC DISORDER [None]
  - INTERNATIONAL NORMALISED RATIO INCREASED [None]
  - JOINT SWELLING [None]
  - OEDEMA PERIPHERAL [None]
  - WEIGHT INCREASED [None]
